FAERS Safety Report 4551259-1 (Version None)
Quarter: 2005Q1

REPORT INFORMATION
  Report Type: 
  Country: None (occurrence: None)
  Receive Date: 20050110
  Receipt Date: 20041224
  Transmission Date: 20050727
  Serious: Yes (Hospitalization, Other)
  Sender: FDA-Public Use
  Company Number: MAG-2004-0000321

PATIENT
  Age: 82 Year
  Sex: Female

DRUGS (1)
  1. OXYCODONE HCL CONTROLLED RELEASE              (OXYCODONE HYDROCHLORIDE [Suspect]
     Indication: CANCER PAIN
     Dosage: 10 MG, DAILY, ORAL
     Route: 048
     Dates: start: 20041201, end: 20041211

REACTIONS (5)
  - CHOLESTASIS [None]
  - DISSEMINATED INTRAVASCULAR COAGULATION [None]
  - HISTIOCYTOSIS HAEMATOPHAGIC [None]
  - INFLAMMATION [None]
  - THROMBOCYTOPENIA [None]
